FAERS Safety Report 8887035 (Version 1)
Quarter: 2012Q4

REPORT INFORMATION
  Report Type: 
  Country: FR (occurrence: FR)
  Receive Date: 20121105
  Receipt Date: 20121105
  Transmission Date: 20130627
  Serious: Yes (Other)
  Sender: FDA-Public Use
  Company Number: FR-ASTRAZENECA-2012SE82890

PATIENT
  Sex: Female

DRUGS (2)
  1. XEROQUEL [Suspect]
     Indication: BIPOLAR DISORDER
     Route: 048
     Dates: start: 201208, end: 20121020
  2. DEPAMIDE [Concomitant]
     Dates: end: 201208

REACTIONS (3)
  - Hepatic steatosis [Not Recovered/Not Resolved]
  - Gamma-glutamyltransferase increased [Not Recovered/Not Resolved]
  - Abdominal pain [Unknown]
